FAERS Safety Report 4933282-8 (Version None)
Quarter: 2006Q1

REPORT INFORMATION
  Report Type: 
  Country: None (occurrence: None)
  Receive Date: 20060306
  Receipt Date: 20060221
  Transmission Date: 20060701
  Serious: Yes (Hospitalization, Disabling)
  Sender: FDA-Public Use
  Company Number: US-MERCK-0602USA05262

PATIENT
  Age: 47 Year
  Sex: Female
  Weight: 107 kg

DRUGS (21)
  1. VIOXX [Suspect]
     Indication: PAIN IN EXTREMITY
     Route: 048
     Dates: start: 20000101, end: 20000203
  2. VIOXX [Suspect]
     Route: 048
     Dates: start: 20000101, end: 20000203
  3. RELAFEN [Concomitant]
     Indication: PAIN
     Route: 065
     Dates: start: 20000101, end: 20050101
  4. INDOCIN [Concomitant]
     Indication: PAIN
     Route: 065
     Dates: start: 20000101, end: 20050101
  5. NAPROXEN [Concomitant]
     Indication: PAIN
     Route: 065
     Dates: start: 20000101, end: 20050101
  6. IBUPROFEN [Concomitant]
     Indication: PAIN
     Route: 065
     Dates: start: 20000101, end: 20050101
  7. ALEVE [Concomitant]
     Indication: PAIN
     Route: 065
     Dates: start: 20000101, end: 20050101
  8. MOTRIN [Concomitant]
     Indication: PAIN
     Route: 065
     Dates: start: 20000101, end: 20050101
  9. CATAPRES [Concomitant]
     Indication: HYPERTENSION
     Route: 065
  10. LIPITOR [Concomitant]
     Indication: BLOOD CHOLESTEROL INCREASED
     Route: 065
  11. CELEBREX [Concomitant]
     Indication: PAIN
     Route: 065
     Dates: start: 20000101, end: 20050101
  12. LISINOPRIL [Concomitant]
     Indication: HYPERTENSION
     Route: 065
     Dates: start: 20000101
  13. PRILOSEC [Concomitant]
     Indication: DYSPEPSIA
     Route: 065
  14. K-DUR 10 [Concomitant]
     Indication: BLOOD POTASSIUM DECREASED
     Route: 065
     Dates: start: 19990101
  15. TYLENOL (CAPLET) [Concomitant]
     Indication: PAIN
     Route: 065
     Dates: start: 20000101, end: 20050101
  16. PROCARDIA [Concomitant]
     Indication: HYPERTENSION
     Route: 065
     Dates: start: 19990101, end: 20030101
  17. LOZOL [Concomitant]
     Indication: OEDEMA
     Route: 065
     Dates: start: 19800101, end: 20020101
  18. LOZOL [Concomitant]
     Indication: HYPERTENSION
     Route: 065
     Dates: start: 19800101, end: 20020101
  19. LASIX [Concomitant]
     Indication: OEDEMA
     Route: 065
     Dates: start: 19800101, end: 20020101
  20. LASIX [Concomitant]
     Indication: HYPERTENSION
     Route: 065
     Dates: start: 19800101, end: 20020101
  21. TENORETIC 100 [Concomitant]
     Indication: HYPERTENSION
     Route: 065
     Dates: start: 19990101, end: 20010101

REACTIONS (10)
  - ASTHENIA [None]
  - ASTHMA [None]
  - CHEST PAIN [None]
  - DYSPNOEA [None]
  - GASTRIC DISORDER [None]
  - HEADACHE [None]
  - HEMIPARESIS [None]
  - MUSCULOSKELETAL PAIN [None]
  - MYOCARDIAL INFARCTION [None]
  - PRESCRIBED OVERDOSE [None]
